FAERS Safety Report 6456989-2 (Version None)
Quarter: 2009Q4

REPORT INFORMATION
  Report Type: 
  Country: None (occurrence: None)
  Receive Date: 20091125
  Receipt Date: 20091116
  Transmission Date: 20100525
  Serious: Yes (Other)
  Sender: FDA-Public Use
  Company Number: US-PFIZER INC-2009298270

PATIENT
  Age: 9 Year
  Sex: Male

DRUGS (7)
  1. VFEND [Suspect]
     Dosage: 150 MG, 2X/DAY
  2. PREDNISONE [Concomitant]
  3. THALIDOMIDE [Concomitant]
     Dosage: 100 MG/DAY
     Route: 061
  4. TACROLIMUS [Concomitant]
  5. SULFAMETHOXAZOLE AND TRIMETHOPRIM [Concomitant]
  6. CYCLOSPORINE [Concomitant]
  7. DACLIZUMAB [Concomitant]

REACTIONS (3)
  - ACTINIC KERATOSIS [None]
  - PHOTOSENSITIVITY REACTION [None]
  - SQUAMOUS CELL CARCINOMA [None]
